FAERS Safety Report 5035738-9 (Version None)
Quarter: 2006Q2

REPORT INFORMATION
  Report Type: 
  Country: None (occurrence: None)
  Receive Date: 20060627
  Receipt Date: 20060616
  Transmission Date: 20061013
  Serious: Yes (Hospitalization)
  Sender: FDA-Public Use
  Company Number: FR-GILEAD-2006-0009752

PATIENT
  Age: 8 Year
  Sex: Female

DRUGS (2)
  1. DAUNOXOME [Suspect]
     Route: 042
     Dates: start: 20060426, end: 20060503
  2. VINDESINE [Concomitant]
     Dates: start: 20060426

REACTIONS (2)
  - BONE MARROW DISORDER [None]
  - CARDIAC FAILURE [None]
